FAERS Safety Report 24002999 (Version 1)
Quarter: 2024Q2

REPORT INFORMATION
  Report Type: Spontaneous
  Country: US (occurrence: US)
  Receive Date: 20240624
  Receipt Date: 20240624
  Transmission Date: 20240716
  Serious: No
  Sender: FDA-Public Use
  Company Number: US-SA-SAC20240618000114

PATIENT
  Age: 6 Year
  Sex: Female
  Weight: 40 kg

DRUGS (1)
  1. DUPIXENT [Suspect]
     Active Substance: DUPILUMAB
     Indication: Dermatitis allergic
     Dosage: 200 MG/ 1.14 ML EVERY OTHER WEEK
     Route: 058

REACTIONS (7)
  - Dermatitis allergic [Unknown]
  - Condition aggravated [Unknown]
  - Pruritus [Not Recovered/Not Resolved]
  - Skin exfoliation [Unknown]
  - Dry skin [Unknown]
  - Middle insomnia [Unknown]
  - Therapeutic response shortened [Unknown]
